FAERS Safety Report 7488289-6 (Version None)
Quarter: 2011Q2

REPORT INFORMATION
  Report Type: 
  Country: None (occurrence: None)
  Receive Date: 20110518
  Receipt Date: 20110509
  Transmission Date: 20111010
  Serious: Yes (Disabling)
  Sender: FDA-Public Use
  Company Number: FR-ASTRAZENECA-2010SE14416

PATIENT
  Sex: Male

DRUGS (6)
  1. PANDEMRIX [Suspect]
     Route: 030
     Dates: start: 20100103, end: 20100103
  2. ASPIRIN [Concomitant]
  3. CRESTOR [Suspect]
     Route: 048
     Dates: start: 20091114
  4. PIASCLEDINE [Concomitant]
  5. INFLUVA [Concomitant]
     Indication: INFLUENZA
     Dates: start: 20091103, end: 20091103
  6. CELIPROLOL [Concomitant]

REACTIONS (1)
  - TENDONITIS [None]
